FAERS Safety Report 9444709 (Version 1)
Quarter: 2013Q3

REPORT INFORMATION
  Report Type: Report from Study
  Country: KR (occurrence: KR)
  Receive Date: 20130807
  Receipt Date: 20130807
  Transmission Date: 20140515
  Serious: Yes (Death)
  Sender: FDA-Public Use
  Company Number: KR-SANOFI-AVENTIS-2013SA078638

PATIENT
  Age: 46 Year
  Sex: Female
  Weight: 76 kg

DRUGS (10)
  1. TAXOTERE [Suspect]
     Indication: OVARIAN CANCER
     Route: 042
     Dates: start: 20130612, end: 20130612
  2. NEOPLATIN [Suspect]
     Indication: OVARIAN CANCER
     Route: 042
     Dates: start: 20130612, end: 20130612
  3. ANALGESICS [Concomitant]
     Route: 042
     Dates: start: 20130612, end: 20130616
  4. MUCOLYTICS [Concomitant]
     Route: 048
     Dates: start: 20130611, end: 20130612
  5. ANTIBIOTICS [Concomitant]
     Route: 048
     Dates: start: 20130611, end: 20130614
  6. COUMADIN [Concomitant]
     Route: 048
     Dates: start: 20130612, end: 20130612
  7. GASMOTIN [Concomitant]
     Route: 048
     Dates: start: 20130612, end: 20130614
  8. HEPARIN [Concomitant]
     Dosage: DOSE:25000 UNIT(S)
     Route: 042
     Dates: start: 20130612, end: 20130615
  9. LASIX [Concomitant]
     Route: 042
     Dates: start: 20130612, end: 20130612
  10. GRASIN [Concomitant]
     Route: 058
     Dates: start: 201306

REACTIONS (1)
  - Sudden death [Fatal]
